FAERS Safety Report 4422118-X (Version None)
Quarter: 2004Q3

REPORT INFORMATION
  Report Type: 
  Country: None (occurrence: None)
  Receive Date: 20040806
  Receipt Date: 20040726
  Transmission Date: 20050211
  Serious: Yes (Hospitalization)
  Sender: FDA-Public Use
  Company Number: HQWYE405901APR03

PATIENT
  Age: 52 Year
  Sex: Female
  Weight: 83.08 kg

DRUGS (10)
  1. MYLOTARG [Suspect]
     Indication: ACUTE MYELOID LEUKAEMIA
     Dosage: 9 MG/M^2 1 PER 1 DAY, INTRAVENOUS
     Route: 042
     Dates: start: 20030228, end: 20030228
  2. MYLOTARG [Suspect]
     Indication: ACUTE MYELOID LEUKAEMIA
     Dosage: 9 MG/M^2 1 PER 1 DAY, INTRAVENOUS
     Route: 042
     Dates: start: 20030315, end: 20030315
  3. LEVOFLOXACIN [Concomitant]
  4. LANSOPRAZOLE [Concomitant]
  5. ACYCLOVIR [Concomitant]
  6. FLUCONAZOLE [Concomitant]
  7. MYCELEX [Concomitant]
  8. PSEUDOEPHEDRINE HCL [Concomitant]
  9. DIPHENHYDRAMINE HCL [Concomitant]
  10. ACETAMINOPHEN [Concomitant]

REACTIONS (8)
  - CLOSTRIDIUM COLITIS [None]
  - DEPRESSION [None]
  - FEBRILE NEUTROPENIA [None]
  - LEUKAEMIA RECURRENT [None]
  - MENTAL STATUS CHANGES [None]
  - ORAL CANDIDIASIS [None]
  - PNEUMONIA [None]
  - RHINORRHOEA [None]
